FAERS Safety Report 6107743-2 (Version None)
Quarter: 2009Q1

REPORT INFORMATION
  Report Type: 
  Country: None (occurrence: None)
  Receive Date: 20090309
  Receipt Date: 20090304
  Transmission Date: 20090719
  Serious: Yes (Hospitalization, Disabling)
  Sender: FDA-Public Use
  Company Number: A0771902A

PATIENT
  Age: 71 Year
  Sex: Female
  Weight: 75 kg

DRUGS (9)
  1. SERETIDE [Suspect]
     Indication: CHRONIC OBSTRUCTIVE PULMONARY DISEASE
     Dosage: 1PUFF TWICE PER DAY
     Route: 055
     Dates: start: 20080302
  2. MICARDIS [Concomitant]
     Dosage: 1TAB TWICE PER DAY
     Route: 048
     Dates: start: 20080301
  3. FLUIMUCIL [Concomitant]
     Dates: start: 20090219
  4. CLEXANE [Concomitant]
     Route: 065
     Dates: start: 20090219
  5. FORTAZ [Concomitant]
     Dates: start: 20090217
  6. FLEBOCORTID [Concomitant]
     Dates: start: 20090211
  7. TAZOCIN [Concomitant]
     Dates: start: 20090219
  8. OMEPRAZOLE [Concomitant]
     Dates: start: 20090221
  9. RANITIDINE [Concomitant]
     Dates: start: 20090221

REACTIONS (9)
  - BLOOD POTASSIUM DECREASED [None]
  - BLOOD SODIUM DECREASED [None]
  - CONFUSIONAL STATE [None]
  - COORDINATION ABNORMAL [None]
  - GAIT DISTURBANCE [None]
  - INFLUENZA [None]
  - ISCHAEMIA [None]
  - LUNG INFECTION [None]
  - PRODUCTIVE COUGH [None]
